FAERS Safety Report 9165566 (Version 1)
Quarter: 2013Q1

REPORT INFORMATION
  Report Type: Spontaneous
  Country: BR (occurrence: BR)
  Receive Date: 20130315
  Receipt Date: 20130315
  Transmission Date: 20140127
  Serious: Yes (Other)
  Sender: FDA-Public Use
  Company Number: BR-SANOFI-AVENTIS-2013SA024429

PATIENT
  Sex: 0

DRUGS (3)
  1. ENOXAPARIN SODIUM [Suspect]
     Indication: HYPERCOAGULATION
     Dosage: FREQUENCY: ON EACH TWO DAYS?STRENGTH: 40MG
     Route: 064
     Dates: start: 201211
  2. AAS [Concomitant]
     Indication: ANTICOAGULANT THERAPY
     Dosage: STRENGTH: 100MG?MOTHER^S ROUTE: PO
     Route: 064
     Dates: start: 20130304
  3. FOLIC ACID [Concomitant]
     Indication: VITAMIN SUPPLEMENTATION
     Dosage: STRENGTH: 5MG?MOTHER^S ROUTE: PO
     Route: 064
     Dates: start: 20130304

REACTIONS (3)
  - Foetal growth restriction [Not Recovered/Not Resolved]
  - Foetal exposure during pregnancy [Not Recovered/Not Resolved]
  - Inappropriate schedule of drug administration [Not Recovered/Not Resolved]
